FAERS Safety Report 7470189-9 (Version None)
Quarter: 2011Q2

REPORT INFORMATION
  Report Type: 
  Country: None (occurrence: None)
  Receive Date: 20110510
  Receipt Date: 20110510
  Transmission Date: 20111010
  Serious: Yes (Hospitalization)
  Sender: FDA-Public Use
  Company Number: D0071229A

PATIENT
  Sex: Female
  Weight: 67 kg

DRUGS (1)
  1. MALARONE [Suspect]
     Indication: MALARIA PROPHYLAXIS
     Route: 048
     Dates: start: 20110414, end: 20110426

REACTIONS (13)
  - HALLUCINATION [None]
  - GASTROENTERITIS [None]
  - ABDOMINAL PAIN [None]
  - FLUID INTAKE REDUCED [None]
  - ABNORMAL DREAMS [None]
  - PANIC ATTACK [None]
  - DIZZINESS [None]
  - HYPOPHAGIA [None]
  - DECREASED APPETITE [None]
  - WEIGHT DECREASED [None]
  - HYPONATRAEMIA [None]
  - NAUSEA [None]
  - DIARRHOEA [None]
